FAERS Safety Report 9464667 (Version 1)
Quarter: 2013Q3

REPORT INFORMATION
  Report Type: Spontaneous
  Country: US (occurrence: US)
  Receive Date: 20130819
  Receipt Date: 20130819
  Transmission Date: 20140515
  Serious: Yes (Hospitalization, Other)
  Sender: FDA-Public Use
  Company Number: US-B.I. PHARMACEUTICALS,INC./RIDGEFIELD-2013-BI-24488BP

PATIENT
  Sex: Female
  Weight: 77 kg

DRUGS (3)
  1. AGGRENOX [Suspect]
     Indication: PRODUCT USED FOR UNKNOWN INDICATION
     Dosage: 25 MG / 200 MG;
     Route: 048
  2. SPIRIVA [Suspect]
     Indication: CHRONIC OBSTRUCTIVE PULMONARY DISEASE
     Dosage: 18 MCG
     Route: 055
     Dates: start: 2010
  3. ASPIRIN [Concomitant]
     Dosage: 81 MG
     Route: 048

REACTIONS (5)
  - Pneumonia [Recovered/Resolved]
  - Renal neoplasm [Not Recovered/Not Resolved]
  - Diarrhoea [Not Recovered/Not Resolved]
  - Hearing impaired [Not Recovered/Not Resolved]
  - Hypersensitivity [Recovered/Resolved]
